FAERS Safety Report 9166738 (Version 9)
Quarter: 2014Q1

REPORT INFORMATION
  Report Type: Spontaneous
  Country: US (occurrence: US)
  Receive Date: 20130315
  Receipt Date: 20140226
  Transmission Date: 20141002
  Serious: No
  Sender: FDA-Public Use
  Company Number: US-009507513-1303USA007263

PATIENT
  Sex: Male

DRUGS (4)
  1. VICTRELIS [Suspect]
     Indication: CHRONIC HEPATITIS C
     Dosage: UNK
     Route: 048
     Dates: start: 20130111, end: 20130920
  2. RIBAVIRIN (KADMON) [Suspect]
     Indication: CHRONIC HEPATITIS C
     Dosage: 1200MG DAILY (DIVIDED DOSE)
     Route: 048
     Dates: start: 20130111, end: 2013
  3. RIBAVIRIN (KADMON) [Suspect]
     Dosage: 600 MG DAILY (DIVIDED DOSE)
     Route: 048
     Dates: start: 2013, end: 20131231
  4. PEGASYS [Suspect]
     Indication: CHRONIC HEPATITIS C
     Dosage: 180 MICROGRAM PROCLICK, QW
     Route: 058
     Dates: start: 20130111, end: 20131231

REACTIONS (17)
  - Blood count abnormal [Unknown]
  - Injection site erythema [Unknown]
  - Product taste abnormal [Unknown]
  - Pharyngeal ulceration [Unknown]
  - Oropharyngeal pain [Unknown]
  - Dyspnoea exertional [Not Recovered/Not Resolved]
  - Pharyngeal oedema [Recovered/Resolved]
  - Decreased appetite [Unknown]
  - Fatigue [Unknown]
  - Anaemia [Unknown]
  - Decreased appetite [Unknown]
  - Alopecia [Unknown]
  - Stomatitis [Unknown]
  - Pallor [Unknown]
  - Fatigue [Unknown]
  - Memory impairment [Unknown]
  - Pharyngitis [Unknown]
